FAERS Safety Report 16588257 (Version 2)
Quarter: 2019Q3

REPORT INFORMATION
  Report Type: Spontaneous
  Country: FR (occurrence: FR)
  Receive Date: 20190717
  Receipt Date: 20190801
  Transmission Date: 20191004
  Serious: Yes (Hospitalization, Other)
  Sender: FDA-Public Use
  Company Number: PHHY2019FR162192

PATIENT
  Age: 54 Year
  Sex: Male
  Weight: 59 kg

DRUGS (6)
  1. CLAMOXYL (AMOXICILLIN) [Suspect]
     Active Substance: AMOXICILLIN
     Indication: DEVICE RELATED INFECTION
     Dosage: 1 DF, TID
     Route: 048
     Dates: start: 20151001, end: 20151008
  2. PIPERACILLIN AND TAZOBACTAM [Concomitant]
     Active Substance: PIPERACILLIN SODIUM\TAZOBACTAM SODIUM
     Indication: DIVERTICULITIS
     Dosage: UNK
     Route: 065
     Dates: start: 20150912, end: 20150923
  3. BACTRIM [Suspect]
     Active Substance: SULFAMETHOXAZOLE\TRIMETHOPRIM
     Indication: DEVICE RELATED INFECTION
     Dosage: 1 DF, BID
     Route: 048
     Dates: start: 20151001, end: 20151008
  4. IMIPENEM [Suspect]
     Active Substance: IMIPENEM
     Indication: DEVICE RELATED INFECTION
     Dosage: 500 MG, QID
     Route: 042
     Dates: start: 20150923, end: 20151001
  5. CILASTATINE [Suspect]
     Active Substance: CILASTATIN
     Indication: DEVICE RELATED INFECTION
     Dosage: 500 MG, QID
     Route: 042
     Dates: start: 20150923, end: 20151001
  6. VANCOMYCIN [Suspect]
     Active Substance: VANCOMYCIN
     Indication: DIVERTICULITIS
     Dosage: 2 G, QD
     Route: 042
     Dates: start: 20150912, end: 20150930

REACTIONS (3)
  - Nephritis [Recovered/Resolved]
  - Rash [Recovered/Resolved]
  - Eosinophilia [Recovered/Resolved]

NARRATIVE: CASE EVENT DATE: 20151005
